FAERS Safety Report 6345151-X (Version None)
Quarter: 2009Q3

REPORT INFORMATION
  Report Type: 
  Country: None (occurrence: None)
  Receive Date: 20090909
  Receipt Date: 20090825
  Transmission Date: 20100115
  Serious: Yes (Other)
  Sender: FDA-Public Use
  Company Number: US-JNJFOC-20090809349

PATIENT
  Sex: Female

DRUGS (2)
  1. EXTRA STRENGTH TYLENOL [Suspect]
     Indication: INSOMNIA
  2. ANTIHYPERTENSIVE [Concomitant]
     Indication: HYPERTENSION

REACTIONS (2)
  - DRUG DEPENDENCE [None]
  - INTENTIONAL DRUG MISUSE [None]
